FAERS Safety Report 5220880-X (Version None)
Quarter: 2007Q1

REPORT INFORMATION
  Report Type: 
  Country: None (occurrence: None)
  Receive Date: 20070126
  Receipt Date: 20070124
  Transmission Date: 20070707
  Serious: Yes (Other)
  Sender: FDA-Public Use
  Company Number: US-GLAXOSMITHKLINE-A0637071A

PATIENT
  Age: 45 Year
  Sex: Female

DRUGS (1)
  1. PAXIL [Suspect]
     Indication: MAJOR DEPRESSION
     Dates: start: 20060801

REACTIONS (2)
  - DEPRESSION [None]
  - SUICIDAL IDEATION [None]
